FAERS Safety Report 15373788 (Version 2)
Quarter: 2019Q1

REPORT INFORMATION
  Report Type: Spontaneous
  Country: US (occurrence: US)
  Receive Date: 20180912
  Receipt Date: 20190211
  Transmission Date: 20190417
  Serious: No
  Sender: FDA-Public Use
  Company Number: US-PFIZER INC-2018367235

PATIENT
  Age: 51 Year
  Sex: Female
  Weight: 93 kg

DRUGS (2)
  1. IBRANCE [Suspect]
     Active Substance: PALBOCICLIB
     Indication: BREAST CANCER METASTATIC
     Dosage: 100 MG, CYCLIC (DL-21 Q28 DAYS)
     Route: 048
     Dates: start: 20180307
  2. IBRANCE [Suspect]
     Active Substance: PALBOCICLIB
     Dosage: 100 MG, CYCLIC (D 21-21 Q 28 DAYS)
     Route: 048
     Dates: start: 2017, end: 201901

REACTIONS (2)
  - Neoplasm progression [Unknown]
  - Pleural effusion [Unknown]
